FAERS Safety Report 21394275 (Version 1)
Quarter: 2022Q3

REPORT INFORMATION
  Report Type: Spontaneous
  Country: DE (occurrence: DE)
  Receive Date: 20220930
  Receipt Date: 20220930
  Transmission Date: 20221026
  Serious: Yes (Hospitalization, Other)
  Sender: FDA-Public Use
  Company Number: DE-ADRED-05745-01

PATIENT
  Age: 73 Year
  Sex: Female
  Weight: 65 kg

DRUGS (10)
  1. CANDESARTAN [Suspect]
     Active Substance: CANDESARTAN
     Indication: Product used for unknown indication
     Dosage: .5 DOSAGE FORMS DAILY; 32 MG, 0-0-0.5-0
     Route: 065
  2. LEVETIRACETAM [Suspect]
     Active Substance: LEVETIRACETAM
     Indication: Product used for unknown indication
     Dosage: 1000 MILLIGRAM DAILY; 500 MG, 1-0-1-0
     Route: 065
  3. ALLOPURINOL [Suspect]
     Active Substance: ALLOPURINOL
     Indication: Product used for unknown indication
     Dosage: 100 MILLIGRAM DAILY; 100 MG, 0-0-1-0
     Route: 065
  4. TORSEMIDE [Suspect]
     Active Substance: TORSEMIDE
     Indication: Product used for unknown indication
     Dosage: 20 MILLIGRAM DAILY; 10 MG, 1-1-0-0
     Route: 065
  5. APIXABAN [Suspect]
     Active Substance: APIXABAN
     Indication: Product used for unknown indication
     Dosage: 10 MILLIGRAM DAILY; 5 MG, 1-0-1-0,
     Route: 065
  6. ALFACALCIDOL [Concomitant]
     Active Substance: ALFACALCIDOL
     Indication: Product used for unknown indication
     Dosage: .25 MICROGRAM DAILY; 0.25 UG, 0-0-1-0,
  7. Iron(II) complex [Concomitant]
     Indication: Product used for unknown indication
     Dosage: 200 MILLIGRAM DAILY; 100 MG, 1-0-1-0
  8. CARVEDILOL [Concomitant]
     Active Substance: CARVEDILOL
     Indication: Product used for unknown indication
     Dosage: 1 DOSAGE FORMS DAILY; 25 MG, 0.5-0-0.5-0
  9. BISOPROLOL [Concomitant]
     Active Substance: BISOPROLOL
     Indication: Product used for unknown indication
     Dosage: 15 MILLIGRAM DAILY; 5 MG, 1-1-1-0
  10. ATORVASTATIN [Concomitant]
     Active Substance: ATORVASTATIN
     Indication: Product used for unknown indication
     Dosage: 40 MILLIGRAM DAILY; 40 MG, 0-0-1-0

REACTIONS (8)
  - Skin haemorrhage [Unknown]
  - Acute kidney injury [Unknown]
  - Gastrointestinal haemorrhage [Unknown]
  - Haematochezia [Unknown]
  - Skin haemorrhage [Unknown]
  - Fatigue [Unknown]
  - Epistaxis [Unknown]
  - Haemoglobin decreased [Unknown]
